FAERS Safety Report 13234093 (Version 6)
Quarter: 2018Q4

REPORT INFORMATION
  Report Type: Report from Study
  Country: CN (occurrence: CN)
  Receive Date: 20170215
  Receipt Date: 20181220
  Transmission Date: 20190204
  Serious: Yes (Other)
  Sender: FDA-Public Use
  Company Number: PHHY2017CN022382

PATIENT
  Age: 40 Year
  Sex: Male

DRUGS (77)
  1. METHYLPREDNISOLONE. [Suspect]
     Active Substance: METHYLPREDNISOLONE
     Indication: IMMUNOSUPPRESSANT DRUG THERAPY
     Dosage: 780 MG, QD
     Route: 065
     Dates: start: 20161224, end: 20161225
  2. OMEPRAZOLE. [Concomitant]
     Active Substance: OMEPRAZOLE
     Indication: GASTRITIS PROPHYLAXIS
     Dosage: 40 MG, QD
     Route: 042
     Dates: start: 20161224, end: 20170110
  3. CALCIUM GLUCONATE. [Concomitant]
     Active Substance: CALCIUM GLUCONATE
     Indication: PROPHYLAXIS
     Dosage: 3000 MG, QD
     Route: 042
     Dates: start: 20161223, end: 20161225
  4. TRAMADOL. [Concomitant]
     Active Substance: TRAMADOL
     Indication: ANALGESIC THERAPY
     Dosage: 100 MG, QD
     Route: 030
     Dates: start: 20170101, end: 20170102
  5. SULFAMETHOXAZOLE [Concomitant]
     Active Substance: SULFAMETHOXAZOLE
     Indication: PRODUCT USED FOR UNKNOWN INDICATION
     Dosage: 240 MG, QD
     Route: 048
     Dates: start: 20170208
  6. MYFORTIC [Suspect]
     Active Substance: MYCOPHENOLATE SODIUM
     Indication: PROPHYLAXIS
     Dosage: 1440 MG, QD
     Route: 065
     Dates: start: 20161224, end: 20170114
  7. TACROLIMUS. [Suspect]
     Active Substance: TACROLIMUS
     Dosage: 8 MG, QD
     Route: 065
     Dates: start: 20170106, end: 20170106
  8. TACROLIMUS. [Suspect]
     Active Substance: TACROLIMUS
     Dosage: 9 MG, QD
     Route: 065
     Dates: start: 20170120, end: 20170125
  9. HEPARIN SODIUM. [Concomitant]
     Active Substance: HEPARIN SODIUM
     Indication: PROPHYLAXIS
     Dosage: 12500 IU, (FOR W2D2)
     Route: 042
     Dates: start: 20161212, end: 20170115
  10. SODIUM PHOSPHATE [Concomitant]
     Active Substance: SODIUM PHOSPHATE
     Dosage: 133 ML, BID
     Route: 054
     Dates: start: 20170103, end: 20170103
  11. INDOMETACIN [Concomitant]
     Active Substance: INDOMETHACIN
     Indication: PRODUCT USED FOR UNKNOWN INDICATION
     Dosage: 50 MG, QD
     Route: 054
     Dates: start: 20170120, end: 20170121
  12. LINEZOLID. [Concomitant]
     Active Substance: LINEZOLID
     Indication: PRODUCT USED FOR UNKNOWN INDICATION
     Dosage: 600 MG, QD
     Route: 042
     Dates: start: 20170106, end: 20170118
  13. TACROLIMUS. [Suspect]
     Active Substance: TACROLIMUS
     Dosage: 5 MG, QD
     Route: 065
     Dates: start: 20170111, end: 20170111
  14. TACROLIMUS. [Suspect]
     Active Substance: TACROLIMUS
     Dosage: 6 MG, QD
     Route: 065
     Dates: start: 20170112, end: 20170112
  15. DEXAMETHASONE. [Concomitant]
     Active Substance: DEXAMETHASONE
     Indication: HYPERSENSITIVITY
     Dosage: 5 MG, UNK
     Route: 042
     Dates: start: 20161223, end: 20161223
  16. MANNITOL. [Concomitant]
     Active Substance: MANNITOL
     Indication: PRODUCT USED FOR UNKNOWN INDICATION
     Dosage: 125 ML, PRN
     Route: 042
     Dates: start: 20161223, end: 20161223
  17. TALCID [Concomitant]
     Active Substance: HYDROTALCITE
     Indication: PROPHYLAXIS AGAINST GASTROINTESTINAL ULCER
     Dosage: 1000 MG, QD
     Route: 048
     Dates: start: 20161224
  18. GANCICLOVIR. [Concomitant]
     Active Substance: GANCICLOVIR
     Dosage: 500 MG, TID
     Route: 048
     Dates: start: 20170210
  19. LEVOFLOXACIN HYDROCHLORIDE [Concomitant]
     Active Substance: LEVOFLOXACIN HYDROCHLORIDE
     Indication: PRODUCT USED FOR UNKNOWN INDICATION
     Dosage: 200 MG, BID
     Route: 042
     Dates: start: 20170129, end: 20170203
  20. BENZBROMARONE [Concomitant]
     Active Substance: BENZBROMARONE
     Indication: PROPHYLAXIS
     Dosage: 50 MG, QD
     Route: 048
     Dates: start: 20170317
  21. BASILIXIMAB [Suspect]
     Active Substance: BASILIXIMAB
     Indication: IMMUNOSUPPRESSANT DRUG THERAPY
     Dosage: 20 MG, QD
     Route: 065
     Dates: start: 20161227, end: 20161227
  22. TACROLIMUS. [Suspect]
     Active Substance: TACROLIMUS
     Indication: IMMUNOSUPPRESSANT DRUG THERAPY
     Dosage: 8 MG, QD
     Route: 065
     Dates: start: 20161224, end: 20161225
  23. TACROLIMUS. [Suspect]
     Active Substance: TACROLIMUS
     Dosage: 9 MG, QD
     Route: 065
     Dates: start: 20161226, end: 20161228
  24. TACROLIMUS. [Suspect]
     Active Substance: TACROLIMUS
     Dosage: 8 MG, QD
     Route: 065
     Dates: start: 20170116, end: 20170119
  25. AMIKACIN. [Concomitant]
     Active Substance: AMIKACIN
     Indication: PROPHYLAXIS
     Dosage: 400 MG, PRN
     Route: 065
     Dates: start: 20161223, end: 20161223
  26. AVELOX [Concomitant]
     Active Substance: MOXIFLOXACIN HYDROCHLORIDE
     Indication: PRODUCT USED FOR UNKNOWN INDICATION
     Dosage: 400 MG, QD
     Route: 042
     Dates: start: 20161228, end: 20170103
  27. DILTIAZEM HYDROCHLORIDE. [Concomitant]
     Active Substance: DILTIAZEM HYDROCHLORIDE
     Indication: PRODUCT USED FOR UNKNOWN INDICATION
     Dosage: 30 MG, BID
     Route: 048
     Dates: start: 20161224
  28. PETHIDINE HYDROCHLORIDE [Concomitant]
     Active Substance: MEPERIDINE HYDROCHLORIDE
     Indication: PAIN
     Dosage: 100 MG, PRN
     Route: 030
     Dates: start: 20170101, end: 20170101
  29. LIDOCAINE. [Concomitant]
     Active Substance: LIDOCAINE
     Indication: PRODUCT USED FOR UNKNOWN INDICATION
     Dosage: 5 MG, PRN
     Route: 061
     Dates: start: 20170111, end: 20170111
  30. IMIPENEM AND CILASTATIN [Concomitant]
     Active Substance: CILASTATIN SODIUM\IMIPENEM
     Dosage: 500 MG, QD
     Route: 042
     Dates: start: 20170120, end: 20170203
  31. MYFORTIC [Suspect]
     Active Substance: MYCOPHENOLATE SODIUM
     Indication: IMMUNOSUPPRESSANT DRUG THERAPY
     Dosage: 1080 MG, QD
     Route: 065
     Dates: start: 20170115, end: 20170122
  32. METHYLPREDNISOLONE. [Suspect]
     Active Substance: METHYLPREDNISOLONE
     Dosage: 400 MG, QD
     Route: 065
     Dates: start: 20161226, end: 20161226
  33. TACROLIMUS. [Suspect]
     Active Substance: TACROLIMUS
     Dosage: 8 MG, QD
     Route: 065
     Dates: start: 20170126, end: 20170207
  34. TACROLIMUS. [Suspect]
     Active Substance: TACROLIMUS
     Dosage: 9 MG, QD
     Route: 065
     Dates: start: 20170208
  35. DIAZEPAM. [Concomitant]
     Active Substance: DIAZEPAM
     Indication: SEDATION
     Dosage: 5 MG, PRN
     Route: 065
     Dates: start: 20161223, end: 20161223
  36. BICYCLOL [Concomitant]
     Active Substance: BICYCLOL
     Dosage: 25 MG, TID
     Route: 048
     Dates: start: 20170207
  37. BERBERINE HYDROCHLORIDE [Concomitant]
     Active Substance: BERBERINE
     Indication: PRODUCT USED FOR UNKNOWN INDICATION
     Dosage: 300 MG, TID
     Route: 048
     Dates: start: 20170107, end: 20170109
  38. LINEZOLID. [Concomitant]
     Active Substance: LINEZOLID
     Dosage: 600 MG, QD
     Route: 048
     Dates: start: 20170211
  39. MAGNESIUM SULFATE. [Concomitant]
     Active Substance: MAGNESIUM SULFATE
     Indication: PRODUCT USED FOR UNKNOWN INDICATION
     Dosage: 3.2 ML, QD
     Route: 042
     Dates: start: 20161223, end: 20161224
  40. IMIPENEM AND CILASTATIN [Concomitant]
     Active Substance: CILASTATIN SODIUM\IMIPENEM
     Indication: PRODUCT USED FOR UNKNOWN INDICATION
     Dosage: 500 MG, QD
     Route: 042
     Dates: start: 20170103, end: 20170109
  41. LEVOFLOXACIN HYDROCHLORIDE [Concomitant]
     Active Substance: LEVOFLOXACIN HYDROCHLORIDE
     Dosage: 200 MG, BID
     Route: 042
     Dates: start: 20170208, end: 20170209
  42. NEOMYCIN SULFATE. [Concomitant]
     Active Substance: NEOMYCIN SULFATE
     Indication: PRODUCT USED FOR UNKNOWN INDICATION
     Dosage: 1 DF, BID
     Route: 065
     Dates: start: 20170112, end: 20170123
  43. METHYLPREDNISOLONE. [Suspect]
     Active Substance: METHYLPREDNISOLONE
     Indication: PROPHYLAXIS
     Dosage: 900 MG, QD
     Route: 065
     Dates: start: 20161223, end: 20161223
  44. METHYLPREDNISOLONE. [Suspect]
     Active Substance: METHYLPREDNISOLONE
     Dosage: 20 MG, QD
     Route: 065
     Dates: start: 20161231, end: 20170113
  45. TACROLIMUS. [Suspect]
     Active Substance: TACROLIMUS
     Dosage: 8 MG, QD
     Route: 065
     Dates: start: 20161229, end: 20170104
  46. DEXAMETHASONE. [Concomitant]
     Active Substance: DEXAMETHASONE
     Indication: PROPHYLAXIS
     Dosage: 10 UNK, PRN
     Route: 065
     Dates: start: 20161223, end: 20161223
  47. ALPRAZOLAM. [Concomitant]
     Active Substance: ALPRAZOLAM
     Indication: SEDATION
     Dosage: 0.4 MG, QD
     Route: 048
     Dates: start: 20161224, end: 20170211
  48. SODIUM BICARBONATE. [Concomitant]
     Active Substance: SODIUM BICARBONATE
     Indication: PRODUCT USED FOR UNKNOWN INDICATION
     Dosage: 1000 MG, BID
     Route: 048
     Dates: start: 20161231
  49. SODIUM BICARBONATE. [Concomitant]
     Active Substance: SODIUM BICARBONATE
     Indication: PRODUCT USED FOR UNKNOWN INDICATION
     Dosage: 250 ML, QD
     Route: 042
     Dates: start: 20161223, end: 20161224
  50. PIPERACILLIN AND TAZOBACTAM [Concomitant]
     Active Substance: PIPERACILLIN SODIUM\TAZOBACTAM SODIUM
     Indication: PRODUCT USED FOR UNKNOWN INDICATION
     Dosage: 2500 MG, PRN
     Route: 042
     Dates: start: 20161223, end: 20161223
  51. BICYCLOL [Concomitant]
     Active Substance: BICYCLOL
     Indication: PRODUCT USED FOR UNKNOWN INDICATION
     Dosage: 50 MG, TID
     Route: 048
     Dates: start: 20170118, end: 20170206
  52. MYFORTIC [Suspect]
     Active Substance: MYCOPHENOLATE SODIUM
     Indication: RENAL TRANSPLANT
     Dosage: 1440 MG, QD
     Route: 065
     Dates: start: 20161223, end: 20161223
  53. MYFORTIC [Suspect]
     Active Substance: MYCOPHENOLATE SODIUM
     Dosage: 720 MG, QD
     Route: 065
     Dates: start: 20170123
  54. BASILIXIMAB [Suspect]
     Active Substance: BASILIXIMAB
     Indication: RENAL TRANSPLANT
     Dosage: 20 MG, QD
     Route: 065
     Dates: start: 20161223, end: 20161223
  55. TACROLIMUS. [Suspect]
     Active Substance: TACROLIMUS
     Dosage: 6 MG, QD
     Route: 065
     Dates: start: 20170105, end: 20170105
  56. TRAMADOL. [Concomitant]
     Active Substance: TRAMADOL
     Dosage: 100 MG, BID
     Route: 030
     Dates: start: 20170103, end: 20170103
  57. FUROSEMIDE. [Concomitant]
     Active Substance: FUROSEMIDE
     Indication: PRODUCT USED FOR UNKNOWN INDICATION
     Dosage: 40 MG, QD
     Route: 042
     Dates: start: 20161226, end: 20170107
  58. ALPROSTADIL. [Concomitant]
     Active Substance: ALPROSTADIL
     Indication: PRODUCT USED FOR UNKNOWN INDICATION
     Dosage: 20 MCG/ML, QD
     Route: 042
     Dates: start: 20161224, end: 20170104
  59. GANCICLOVIR. [Concomitant]
     Active Substance: GANCICLOVIR
     Indication: PRODUCT USED FOR UNKNOWN INDICATION
     Dosage: 450 MG, QD
     Route: 042
     Dates: start: 20170110, end: 20170115
  60. LEUCOGEN [Concomitant]
     Active Substance: LEUCOGEN
     Indication: PRODUCT USED FOR UNKNOWN INDICATION
     Dosage: 2 DF, TID
     Route: 048
     Dates: start: 20161224, end: 20170104
  61. VITAMIN B [Concomitant]
     Active Substance: VITAMIN B
     Indication: PRODUCT USED FOR UNKNOWN INDICATION
     Dosage: 20 MG, TID
     Route: 048
     Dates: start: 20170123, end: 20170126
  62. METHYLPREDNISOLONE. [Suspect]
     Active Substance: METHYLPREDNISOLONE
     Dosage: 40 MG, QD
     Route: 065
     Dates: start: 20161227, end: 20161230
  63. PREDNISONE. [Suspect]
     Active Substance: PREDNISONE
     Indication: IMMUNOSUPPRESSANT DRUG THERAPY
     Dosage: 15 MG, QD
     Route: 065
     Dates: start: 20170113
  64. TACROLIMUS. [Suspect]
     Active Substance: TACROLIMUS
     Dosage: 7 MG, QD
     Route: 065
     Dates: start: 20170113, end: 20170115
  65. PROMETHAZINE [Concomitant]
     Active Substance: PROMETHAZINE\PROMETHAZINE HYDROCHLORIDE
     Indication: SEDATION
     Dosage: 2 DF, TID
     Route: 048
     Dates: start: 20161224, end: 20170104
  66. AVELOX [Concomitant]
     Active Substance: MOXIFLOXACIN HYDROCHLORIDE
     Dosage: 400 MG, PRN
     Route: 042
     Dates: start: 20170120, end: 20170120
  67. DEXAMETHASONE. [Concomitant]
     Active Substance: DEXAMETHASONE
     Dosage: 5 MG, PRN
     Route: 042
     Dates: start: 20170120, end: 20170120
  68. SODIUM CHLORIDE. [Concomitant]
     Active Substance: SODIUM CHLORIDE
     Indication: PRODUCT USED FOR UNKNOWN INDICATION
     Dosage: 500 ML, PRN
     Route: 042
     Dates: start: 20170120, end: 20170120
  69. CRAVIT [Concomitant]
     Active Substance: LEVOFLOXACIN
     Indication: PRODUCT USED FOR UNKNOWN INDICATION
     Dosage: 500 MG, QD
     Route: 042
     Dates: start: 20170122, end: 20170129
  70. SODIUM PHOSPHATE [Concomitant]
     Active Substance: SODIUM PHOSPHATE
     Indication: PRODUCT USED FOR UNKNOWN INDICATION
     Dosage: 133 ML, PRN
     Route: 054
     Dates: start: 20161223, end: 20161223
  71. FUROSEMIDE. [Concomitant]
     Active Substance: FUROSEMIDE
     Indication: PRODUCT USED FOR UNKNOWN INDICATION
     Dosage: 80 MG, PRN
     Route: 042
     Dates: start: 20161223, end: 20161223
  72. GANCICLOVIR. [Concomitant]
     Active Substance: GANCICLOVIR
     Dosage: 500 MG, TID
     Route: 048
     Dates: start: 20170115, end: 20170123
  73. LINEZOLID. [Concomitant]
     Active Substance: LINEZOLID
     Dosage: 600 MG, QD
     Route: 042
     Dates: start: 20170209, end: 20170211
  74. CEFOPERAZONA/SULBACTAM [Concomitant]
     Active Substance: CEFOPERAZONE SODIUM\SULBACTAM SODIUM
     Indication: PRODUCT USED FOR UNKNOWN INDICATION
     Dosage: 2000 MG, QD
     Route: 042
     Dates: start: 20161224, end: 20161228
  75. SMECTA [Concomitant]
     Active Substance: MONTMORILLONITE
     Indication: PRODUCT USED FOR UNKNOWN INDICATION
     Dosage: 3000 MG, TID
     Route: 048
     Dates: start: 20170107, end: 20170109
  76. HEPATITIS B IMMUNE GLOBULIN [Concomitant]
     Active Substance: HUMAN HEPATITIS B VIRUS IMMUNE GLOBULIN
     Indication: INFECTION PROPHYLAXIS
     Dosage: 400 IU, PRN
     Route: 030
     Dates: start: 20161224, end: 20161224
  77. LEVOFLOXACIN HYDROCHLORIDE [Concomitant]
     Active Substance: LEVOFLOXACIN HYDROCHLORIDE
     Indication: PRODUCT USED FOR UNKNOWN INDICATION

REACTIONS (20)
  - Blood triglycerides decreased [Unknown]
  - Kidney infection [Recovered/Resolved]
  - Blood albumin decreased [Recovering/Resolving]
  - Red blood cells urine positive [Recovering/Resolving]
  - Incision site pain [Recovering/Resolving]
  - Anaemia [Recovered/Resolved]
  - Alanine aminotransferase increased [Recovering/Resolving]
  - Hypoalbuminaemia [Recovering/Resolving]
  - Diarrhoea [Recovering/Resolving]
  - Leukopenia [Recovered/Resolved]
  - White blood cell count increased [Recovering/Resolving]
  - Blood glucose increased [Recovering/Resolving]
  - Lung infection [Recovering/Resolving]
  - Urinary tract infection [Recovered/Resolved]
  - High density lipoprotein decreased [Unknown]
  - Blood urea increased [Unknown]
  - Protein urine present [Recovering/Resolving]
  - Lymphocyte count decreased [Recovering/Resolving]
  - Neutrophil count increased [Recovering/Resolving]
  - Haemoglobin decreased [Unknown]

NARRATIVE: CASE EVENT DATE: 20161224
